FAERS Safety Report 4677208-3 (Version None)
Quarter: 2005Q2

REPORT INFORMATION
  Report Type: 
  Country: None (occurrence: None)
  Receive Date: 20050526
  Receipt Date: 20050526
  Transmission Date: 20051028
  Serious: Yes (Life-Threatening, Hospitalization)
  Sender: FDA-Public Use
  Company Number: None

PATIENT
  Age: 47 Year
  Sex: Female
  Weight: 95.2554 kg

DRUGS (2)
  1. VIOXX [Suspect]
     Indication: INFLAMMATION
     Dosage: ONCE A DAY AS NEEDED
  2. CELEBREX [Suspect]

REACTIONS (5)
  - APHONIA [None]
  - HEART RATE ABNORMAL [None]
  - HYPERTENSION [None]
  - INFLAMMATION [None]
  - VOCAL CORD INFLAMMATION [None]
